FAERS Safety Report 7047635-8 (Version None)
Quarter: 2010Q4

REPORT INFORMATION
  Report Type: 
  Country: None (occurrence: None)
  Receive Date: 20101015
  Receipt Date: 20101005
  Transmission Date: 20110411
  Serious: Yes (Disabling)
  Sender: FDA-Public Use
  Company Number: TN-JNJFOC-20101003635

PATIENT
  Age: 48 Year

DRUGS (1)
  1. KETOCONAZOLE [Suspect]
     Indication: MYCETOMA MYCOTIC
     Dosage: INITIAL THERAPY OF 400MG DAILY FOR 14 MONTHS   SUBSEQUENT THERAPY OF 400MG DAILY FOR 18 MONTHS
     Route: 065

REACTIONS (2)
  - JOINT ANKYLOSIS [None]
  - TREATMENT FAILURE [None]
